FAERS Safety Report 17488465 (Version 1)
Quarter: 2020Q1

REPORT INFORMATION
  Report Type: Spontaneous
  Country: US (occurrence: US)
  Receive Date: 20200302
  Receipt Date: 20200302
  Transmission Date: 20200409
  Serious: Yes (Disabling, Other)
  Sender: FDA-Public Use
  Company Number: None

PATIENT
  Age: 23 Year
  Sex: Male
  Weight: 63 kg

DRUGS (1)
  1. ABILIFY MAINTENA [Suspect]
     Active Substance: ARIPIPRAZOLE
     Indication: SCHIZOPHRENIA
     Dosage: ?          QUANTITY:1 INJECTION(S);OTHER FREQUENCY:ONCE A MONTH;?
     Route: 030
     Dates: start: 20161001, end: 20200301

REACTIONS (6)
  - Extrapyramidal disorder [None]
  - Aggression [None]
  - Dizziness [None]
  - Nausea [None]
  - Tardive dyskinesia [None]
  - Somnolence [None]

NARRATIVE: CASE EVENT DATE: 20161001
